FAERS Safety Report 17184813 (Version 1)
Quarter: 2019Q4

REPORT INFORMATION
  Report Type: Spontaneous
  Country: IN (occurrence: IN)
  Receive Date: 20191220
  Receipt Date: 20191220
  Transmission Date: 20200122
  Serious: Yes (Other)
  Sender: FDA-Public Use
  Company Number: IN-PFIZER INC-2019366352

PATIENT
  Age: 65 Year
  Sex: Female

DRUGS (1)
  1. CRIZALK [Suspect]
     Active Substance: CRIZOTINIB
     Indication: LUNG NEOPLASM MALIGNANT
     Dosage: 250 MG, 2X/DAY
     Route: 048
     Dates: start: 20190529

REACTIONS (5)
  - Diarrhoea [Unknown]
  - Dyspepsia [Unknown]
  - Hypertension [Unknown]
  - Type 2 diabetes mellitus [Unknown]
  - Hypothyroidism [Unknown]

NARRATIVE: CASE EVENT DATE: 2019
